FAERS Safety Report 20126676 (Version 1)
Quarter: 2021Q4

REPORT INFORMATION
  Report Type: Spontaneous
  Country: US (occurrence: None)
  Receive Date: 20211129
  Receipt Date: 20211129
  Transmission Date: 20220303
  Serious: Yes (Hospitalization)
  Sender: FDA-Public Use
  Company Number: None

PATIENT
  Sex: Female

DRUGS (7)
  1. PERTZYE [Suspect]
     Active Substance: PANCRELIPASE AMYLASE\PANCRELIPASE LIPASE\PANCRELIPASE PROTEASE
     Indication: Cystic fibrosis
     Dosage: OTHER QUANTITY : 16000-57500 UNIT ;?FREQUENCY : TAKE 3  CAPSULES 3 TIMES A DAY; AND 3 CAPSULES WITH
     Route: 048
     Dates: start: 20190605
  2. PERTZYE [Suspect]
     Active Substance: PANCRELIPASE AMYLASE\PANCRELIPASE LIPASE\PANCRELIPASE PROTEASE
     Indication: Cystic fibrosis
     Dosage: OTHER QUANTITY : 8,000 UNIT;?OTHER FREQUENCY : 6 TIMES DAILY ;?
     Route: 048
     Dates: start: 20191017
  3. COMPLETE FORMULATION MULT [Concomitant]
  4. ERYTHROM ETH SUS 200/5ML [Concomitant]
  5. PREVACID TAB 15MG STB [Concomitant]
  6. PROAIR HFA [Concomitant]
     Active Substance: ALBUTEROL SULFATE
  7. PULMOZYME SOL 1 MG/ML [Concomitant]

REACTIONS (3)
  - Infection [None]
  - Inflammation [None]
  - Nasal congestion [None]
